FAERS Safety Report 19349734 (Version 3)
Quarter: 2021Q4

REPORT INFORMATION
  Report Type: Report from Study
  Country: KR (occurrence: KR)
  Receive Date: 20210531
  Receipt Date: 20211211
  Transmission Date: 20220303
  Serious: Yes (Hospitalization, Other)
  Sender: FDA-Public Use
  Company Number: KR-KYOWAKIRIN-2021AKK009022

PATIENT
  Age: 68 Year
  Sex: Male

DRUGS (101)
  1. FILGRASTIM [Suspect]
     Active Substance: FILGRASTIM
     Indication: Product used for unknown indication
     Dosage: UNK
     Route: 065
     Dates: start: 20111017, end: 20111017
  2. FILGRASTIM [Suspect]
     Active Substance: FILGRASTIM
     Dosage: UNK
     Route: 065
     Dates: start: 20111114, end: 20111201
  3. FILGRASTIM [Suspect]
     Active Substance: FILGRASTIM
     Dosage: UNK
     Route: 065
     Dates: start: 20111212, end: 20111226
  4. FILGRASTIM [Suspect]
     Active Substance: FILGRASTIM
     Dosage: UNK
     Route: 065
     Dates: start: 20120109, end: 20120119
  5. FILGRASTIM [Suspect]
     Active Substance: FILGRASTIM
     Dosage: UNK
     Route: 065
     Dates: start: 20120508, end: 20120508
  6. FILGRASTIM [Suspect]
     Active Substance: FILGRASTIM
     Dosage: UNK
     Route: 065
     Dates: start: 20120612, end: 20120612
  7. FILGRASTIM [Suspect]
     Active Substance: FILGRASTIM
     Dosage: UNK
     Route: 065
     Dates: start: 20120717, end: 20120717
  8. FILGRASTIM [Suspect]
     Active Substance: FILGRASTIM
     Dosage: UNK
     Route: 065
     Dates: start: 20120731, end: 20120731
  9. FILGRASTIM [Suspect]
     Active Substance: FILGRASTIM
     Dosage: UNK
     Route: 065
     Dates: start: 20120814, end: 20120814
  10. FILGRASTIM [Suspect]
     Active Substance: FILGRASTIM
     Dosage: UNK
     Route: 065
     Dates: start: 20121009, end: 20121009
  11. FILGRASTIM [Suspect]
     Active Substance: FILGRASTIM
     Dosage: UNK
     Route: 065
     Dates: start: 20121106, end: 20121106
  12. FILGRASTIM [Suspect]
     Active Substance: FILGRASTIM
     Dosage: UNK
     Route: 065
     Dates: start: 20121204, end: 20121204
  13. FILGRASTIM [Suspect]
     Active Substance: FILGRASTIM
     Dosage: UNK
     Route: 065
     Dates: start: 20121231, end: 20121231
  14. FILGRASTIM [Suspect]
     Active Substance: FILGRASTIM
     Dosage: UNK
     Route: 065
     Dates: start: 20130129, end: 20130129
  15. FILGRASTIM [Suspect]
     Active Substance: FILGRASTIM
     Dosage: UNK
     Route: 065
     Dates: start: 20130226, end: 20130226
  16. FILGRASTIM [Suspect]
     Active Substance: FILGRASTIM
     Dosage: UNK
     Route: 065
     Dates: start: 20130326, end: 20130326
  17. FILGRASTIM [Suspect]
     Active Substance: FILGRASTIM
     Dosage: UNK
     Route: 065
     Dates: start: 20130423, end: 20130423
  18. FILGRASTIM [Suspect]
     Active Substance: FILGRASTIM
     Dosage: UNK
     Route: 065
     Dates: start: 20130521, end: 20130521
  19. FILGRASTIM [Suspect]
     Active Substance: FILGRASTIM
     Dosage: UNK
     Route: 065
     Dates: start: 20130528, end: 20130528
  20. FILGRASTIM [Suspect]
     Active Substance: FILGRASTIM
     Dosage: UNK
     Route: 065
     Dates: start: 20130625, end: 20130625
  21. FILGRASTIM [Suspect]
     Active Substance: FILGRASTIM
     Dosage: UNK
     Route: 065
     Dates: start: 20130702, end: 20130702
  22. FILGRASTIM [Suspect]
     Active Substance: FILGRASTIM
     Dosage: UNK
     Route: 065
     Dates: start: 20130813, end: 20130813
  23. DECITABINE [Concomitant]
     Active Substance: DECITABINE
     Indication: Product used for unknown indication
     Dosage: 20 UNK
     Route: 065
     Dates: start: 20130302, end: 20130302
  24. DECITABINE [Concomitant]
     Active Substance: DECITABINE
     Dosage: 20 UNK
     Route: 065
     Dates: start: 20110919, end: 20110923
  25. DECITABINE [Concomitant]
     Active Substance: DECITABINE
     Dosage: 20 UNK
     Route: 065
     Dates: start: 20111017, end: 20111021
  26. DECITABINE [Concomitant]
     Active Substance: DECITABINE
     Dosage: 20 UNK
     Route: 065
     Dates: start: 20111114, end: 20111118
  27. DECITABINE [Concomitant]
     Active Substance: DECITABINE
     Dosage: 20 UNK
     Route: 065
     Dates: start: 20111212, end: 20111216
  28. DECITABINE [Concomitant]
     Active Substance: DECITABINE
     Dosage: 20 UNK
     Route: 065
     Dates: start: 20120109, end: 20120113
  29. DECITABINE [Concomitant]
     Active Substance: DECITABINE
     Dosage: 20 UNK
     Route: 065
     Dates: start: 20120206, end: 20120210
  30. DECITABINE [Concomitant]
     Active Substance: DECITABINE
     Dosage: 20 UNK
     Route: 065
     Dates: start: 20120305, end: 20120309
  31. DECITABINE [Concomitant]
     Active Substance: DECITABINE
     Dosage: 20 UNK
     Route: 065
     Dates: start: 20120410, end: 20120414
  32. DECITABINE [Concomitant]
     Active Substance: DECITABINE
     Dosage: 20 UNK
     Route: 065
     Dates: start: 20120515, end: 20120519
  33. DECITABINE [Concomitant]
     Active Substance: DECITABINE
     Dosage: 20 UNK
     Route: 065
     Dates: start: 20120619, end: 20120623
  34. DECITABINE [Concomitant]
     Active Substance: DECITABINE
     Dosage: 20 UNK
     Route: 065
     Dates: start: 20120717, end: 20120721
  35. DECITABINE [Concomitant]
     Active Substance: DECITABINE
     Dosage: 20 UNK
     Route: 065
     Dates: start: 20120814, end: 20120814
  36. DECITABINE [Concomitant]
     Active Substance: DECITABINE
     Dosage: 20 UNK
     Route: 065
     Dates: start: 20120816, end: 20120818
  37. DECITABINE [Concomitant]
     Active Substance: DECITABINE
     Dosage: 20 UNK
     Route: 065
     Dates: start: 20120820, end: 20120820
  38. DECITABINE [Concomitant]
     Active Substance: DECITABINE
     Dosage: 20 UNK
     Route: 065
     Dates: start: 20120911, end: 20120915
  39. DECITABINE [Concomitant]
     Active Substance: DECITABINE
     Dosage: 20 UNK
     Route: 065
     Dates: start: 20121009, end: 20121013
  40. DECITABINE [Concomitant]
     Active Substance: DECITABINE
     Dosage: 20 UNK
     Route: 065
     Dates: start: 20121106, end: 20121110
  41. DECITABINE [Concomitant]
     Active Substance: DECITABINE
     Dosage: 20 UNK
     Route: 065
     Dates: start: 20121204, end: 20121208
  42. DECITABINE [Concomitant]
     Active Substance: DECITABINE
     Dosage: 20 UNK
     Route: 065
     Dates: start: 20121231, end: 20121231
  43. DECITABINE [Concomitant]
     Active Substance: DECITABINE
     Dosage: 20 UNK
     Route: 065
     Dates: start: 20130105, end: 20130105
  44. DECITABINE [Concomitant]
     Active Substance: DECITABINE
     Dosage: 20 UNK
     Route: 065
     Dates: start: 20130129, end: 20130202
  45. DECITABINE [Concomitant]
     Active Substance: DECITABINE
     Dosage: 20 UNK
     Route: 065
     Dates: start: 20130226, end: 20130228
  46. DECITABINE [Concomitant]
     Active Substance: DECITABINE
     Dosage: 20 UNK
     Route: 065
     Dates: start: 20130304, end: 20130304
  47. DECITABINE [Concomitant]
     Active Substance: DECITABINE
     Dosage: 20 UNK
     Route: 065
     Dates: start: 20130326, end: 20130330
  48. DECITABINE [Concomitant]
     Active Substance: DECITABINE
     Dosage: 20 UNK
     Route: 065
     Dates: start: 20130423, end: 20130427
  49. DECITABINE [Concomitant]
     Active Substance: DECITABINE
     Dosage: 20 UNK
     Route: 065
     Dates: start: 20130528, end: 20130601
  50. DECITABINE [Concomitant]
     Active Substance: DECITABINE
     Dosage: 20 UNK
     Route: 065
     Dates: start: 20130709, end: 20130713
  51. DECITABINE [Concomitant]
     Active Substance: DECITABINE
     Dosage: 20 UNK
     Route: 065
     Dates: start: 20130820, end: 20130824
  52. AMBROXOL [Concomitant]
     Active Substance: AMBROXOL
     Indication: Product used for unknown indication
     Dosage: 90 MG
     Route: 065
     Dates: start: 20110915, end: 20110926
  53. FLUCONAZOLE [Concomitant]
     Active Substance: FLUCONAZOLE
     Indication: Product used for unknown indication
     Dosage: 200 MG
     Route: 065
     Dates: start: 20111017, end: 20111027
  54. FLUCONAZOLE [Concomitant]
     Active Substance: FLUCONAZOLE
     Dosage: 200 MG
     Route: 065
     Dates: start: 20111114, end: 20111211
  55. FLUCONAZOLE [Concomitant]
     Active Substance: FLUCONAZOLE
     Dosage: 200 MG
     Route: 065
     Dates: start: 20111212, end: 20120108
  56. FLUCONAZOLE [Concomitant]
     Active Substance: FLUCONAZOLE
     Dosage: 200 MG
     Route: 065
     Dates: start: 20120109, end: 20120205
  57. FLUCONAZOLE [Concomitant]
     Active Substance: FLUCONAZOLE
     Dosage: 200 MG
     Route: 065
     Dates: start: 20120410, end: 20120514
  58. FLUCONAZOLE [Concomitant]
     Active Substance: FLUCONAZOLE
     Dosage: 200 MG
     Route: 065
     Dates: start: 20120515, end: 20120618
  59. FLUCONAZOLE [Concomitant]
     Active Substance: FLUCONAZOLE
     Dosage: 200 MG
     Route: 065
     Dates: start: 20120619, end: 20120714
  60. FLUCONAZOLE [Concomitant]
     Active Substance: FLUCONAZOLE
     Dosage: 200 MG
     Route: 065
     Dates: start: 20120717, end: 20120813
  61. FLUCONAZOLE [Concomitant]
     Active Substance: FLUCONAZOLE
     Dosage: 200 MG
     Route: 065
     Dates: start: 20120814, end: 20120910
  62. FLUCONAZOLE [Concomitant]
     Active Substance: FLUCONAZOLE
     Dosage: 200 MG
     Route: 065
     Dates: start: 20120911, end: 20121008
  63. FLUCONAZOLE [Concomitant]
     Active Substance: FLUCONAZOLE
     Dosage: 200 MG
     Route: 065
     Dates: start: 20121009, end: 20121105
  64. FLUCONAZOLE [Concomitant]
     Active Substance: FLUCONAZOLE
     Dosage: 200 MG
     Route: 065
     Dates: start: 20121106, end: 20121203
  65. FLUCONAZOLE [Concomitant]
     Active Substance: FLUCONAZOLE
     Dosage: 200 MG
     Route: 065
     Dates: start: 20121204, end: 20121231
  66. FLUCONAZOLE [Concomitant]
     Active Substance: FLUCONAZOLE
     Dosage: 200 MG
     Route: 065
     Dates: start: 20121231, end: 20130129
  67. FLUCONAZOLE [Concomitant]
     Active Substance: FLUCONAZOLE
     Dosage: 200 MG
     Route: 065
     Dates: start: 20130129, end: 20130226
  68. FLUCONAZOLE [Concomitant]
     Active Substance: FLUCONAZOLE
     Dosage: 200 MG
     Route: 065
     Dates: start: 20130226, end: 20130325
  69. FLUCONAZOLE [Concomitant]
     Active Substance: FLUCONAZOLE
     Dosage: 200 MG
     Route: 065
     Dates: start: 20130326, end: 20130422
  70. FLUCONAZOLE [Concomitant]
     Active Substance: FLUCONAZOLE
     Dosage: 200 MG
     Route: 065
     Dates: start: 20130423, end: 20130527
  71. FLUCONAZOLE [Concomitant]
     Active Substance: FLUCONAZOLE
     Dosage: 200 MG
     Dates: start: 20130528, end: 20130708
  72. FLUCONAZOLE [Concomitant]
     Active Substance: FLUCONAZOLE
     Dosage: 200 MG
     Route: 065
     Dates: start: 20130709, end: 20130819
  73. NITROGLYCERIN [Concomitant]
     Active Substance: NITROGLYCERIN
     Indication: Product used for unknown indication
     Dosage: 0.6 MG
     Route: 065
     Dates: start: 20130710, end: 20130716
  74. LEVOFLOXACIN [Concomitant]
     Active Substance: LEVOFLOXACIN
     Indication: Product used for unknown indication
     Dosage: 500 MG
     Route: 065
     Dates: start: 20110919, end: 20110926
  75. LEVOFLOXACIN [Concomitant]
     Active Substance: LEVOFLOXACIN
     Dosage: 500 MILLIGRAM
     Dates: start: 20111017, end: 20111027
  76. LEVOFLOXACIN [Concomitant]
     Active Substance: LEVOFLOXACIN
     Dosage: 500 MILLIGRAM
     Dates: start: 20111114, end: 20111211
  77. LEVOFLOXACIN [Concomitant]
     Active Substance: LEVOFLOXACIN
     Dosage: 500 MILLIGRAM
     Dates: start: 20111212, end: 20120108
  78. LEVOFLOXACIN [Concomitant]
     Active Substance: LEVOFLOXACIN
     Dosage: 500 MILLIGRAM
     Dates: start: 20120109, end: 20120205
  79. LEVOFLOXACIN [Concomitant]
     Active Substance: LEVOFLOXACIN
     Dosage: 500 MILLIGRAM
     Dates: start: 20120410, end: 20120514
  80. LEVOFLOXACIN [Concomitant]
     Active Substance: LEVOFLOXACIN
     Dosage: 500 MILLIGRAM
     Dates: start: 20120515, end: 20120618
  81. LEVOFLOXACIN [Concomitant]
     Active Substance: LEVOFLOXACIN
     Dosage: 500 MILLIGRAM
     Dates: start: 20120619, end: 20120714
  82. LEVOFLOXACIN [Concomitant]
     Active Substance: LEVOFLOXACIN
     Dosage: 500 MILLIGRAM
     Dates: start: 20120717, end: 20120813
  83. LEVOFLOXACIN [Concomitant]
     Active Substance: LEVOFLOXACIN
     Dosage: 500 MILLIGRAM
     Dates: start: 20120814, end: 20120910
  84. LEVOFLOXACIN [Concomitant]
     Active Substance: LEVOFLOXACIN
     Dosage: 500 MILLIGRAM
     Dates: start: 20120911, end: 20121008
  85. LEVOFLOXACIN [Concomitant]
     Active Substance: LEVOFLOXACIN
     Dosage: 500 MILLIGRAM
     Dates: start: 20121009, end: 20121105
  86. LEVOFLOXACIN [Concomitant]
     Active Substance: LEVOFLOXACIN
     Dosage: 500 MILLIGRAM
     Dates: start: 20121106, end: 20121203
  87. LEVOFLOXACIN [Concomitant]
     Active Substance: LEVOFLOXACIN
     Dosage: 500 MILLIGRAM
     Dates: start: 20121204, end: 20121231
  88. LEVOFLOXACIN [Concomitant]
     Active Substance: LEVOFLOXACIN
     Dosage: 500 MILLIGRAM
     Dates: start: 20121231, end: 20130129
  89. LEVOFLOXACIN [Concomitant]
     Active Substance: LEVOFLOXACIN
     Dosage: 500 MILLIGRAM
     Dates: start: 20130129, end: 20130226
  90. LEVOFLOXACIN [Concomitant]
     Active Substance: LEVOFLOXACIN
     Dosage: 500 MILLIGRAM
     Dates: start: 20130226, end: 20130325
  91. LEVOFLOXACIN [Concomitant]
     Active Substance: LEVOFLOXACIN
     Dosage: 500 MILLIGRAM
     Dates: start: 20130326, end: 20130422
  92. LEVOFLOXACIN [Concomitant]
     Active Substance: LEVOFLOXACIN
     Dosage: 500 MILLIGRAM
     Dates: start: 20130423, end: 20130527
  93. LEVOFLOXACIN [Concomitant]
     Active Substance: LEVOFLOXACIN
     Dosage: 500 MILLIGRAM
     Dates: start: 20130528, end: 20130708
  94. LEVOFLOXACIN [Concomitant]
     Active Substance: LEVOFLOXACIN
     Dosage: 500 MILLIGRAM
     Dates: start: 20130709, end: 20130819
  95. LOPERAMIDE OXIDE [Concomitant]
     Active Substance: LOPERAMIDE OXIDE
     Indication: Product used for unknown indication
     Dosage: 1 MG
     Route: 065
     Dates: start: 20120312, end: 20120316
  96. MAGNESIUM OXIDE [Concomitant]
     Active Substance: MAGNESIUM OXIDE
     Indication: Product used for unknown indication
     Dosage: 500 MG
     Route: 065
     Dates: start: 20120320
  97. MOLSIDOMINE [Concomitant]
     Active Substance: MOLSIDOMINE
     Indication: Product used for unknown indication
     Dosage: 4 MG
     Route: 065
     Dates: start: 20130717
  98. MOSAPRIDE [Concomitant]
     Active Substance: MOSAPRIDE
     Indication: Product used for unknown indication
     Dosage: 15 MG
     Route: 065
     Dates: start: 20111017
  99. ACETAMINOPHEN [Concomitant]
     Active Substance: ACETAMINOPHEN
     Indication: Product used for unknown indication
     Dosage: 3900 MG
     Route: 065
     Dates: start: 20110915, end: 20110926
  100. PROPACETAMOL [Concomitant]
     Active Substance: PROPACETAMOL
     Indication: Product used for unknown indication
     Dosage: 1 UNK
     Route: 065
     Dates: start: 20120412, end: 20120412
  101. URSODIOL [Concomitant]
     Active Substance: URSODIOL
     Indication: Product used for unknown indication
     Dosage: 400 MG
     Route: 065
     Dates: start: 20120507

REACTIONS (2)
  - Arterial stenosis [Not Recovered/Not Resolved]
  - Pancytopenia [Not Recovered/Not Resolved]

NARRATIVE: CASE EVENT DATE: 20130923
